FAERS Safety Report 15622902 (Version 1)
Quarter: 2018Q4

REPORT INFORMATION
  Report Type: Spontaneous
  Country: US (occurrence: US)
  Receive Date: 20181115
  Receipt Date: 20181115
  Transmission Date: 20190205
  Serious: Yes (Other)
  Sender: FDA-Public Use
  Company Number: US-SA-2017SA265142

PATIENT
  Age: 63 Year
  Sex: Female
  Weight: 83.91 kg

DRUGS (13)
  1. TAXOTERE [Suspect]
     Active Substance: DOCETAXEL
     Indication: BREAST CANCER FEMALE
     Dosage: 150 MG,Q3W
     Route: 042
     Dates: start: 20150108, end: 20150108
  2. METOPROLOL TARTRATE. [Concomitant]
     Active Substance: METOPROLOL TARTRATE
  3. FUROSEMIDE. [Concomitant]
     Active Substance: FUROSEMIDE
  4. HYDROCODONE [Concomitant]
     Active Substance: HYDROCODONE
  5. TAXOTERE [Suspect]
     Active Substance: DOCETAXEL
     Dosage: 150 MG,Q3W
     Route: 042
     Dates: start: 20150423, end: 20150423
  6. FENOBIBRATE [Concomitant]
     Active Substance: FENOFIBRATE
  7. CHLORZOXAZONE. [Concomitant]
     Active Substance: CHLORZOXAZONE
  8. VITAMIN C [Concomitant]
     Active Substance: ASCORBIC ACID
  9. ZOLPIDEM [Concomitant]
     Active Substance: ZOLPIDEM\ZOLPIDEM TARTRATE
  10. SIMVASTATIN. [Concomitant]
     Active Substance: SIMVASTATIN
  11. HYDROCHLOROTHIAZIDE. [Concomitant]
     Active Substance: HYDROCHLOROTHIAZIDE
  12. PARAPLATIN [Concomitant]
     Active Substance: CARBOPLATIN
  13. KLOR-CON [Concomitant]
     Active Substance: POTASSIUM CHLORIDE

REACTIONS (2)
  - Alopecia [Recovering/Resolving]
  - Psychological trauma [Unknown]

NARRATIVE: CASE EVENT DATE: 2016
